FAERS Safety Report 7238242-2 (Version None)
Quarter: 2011Q1

REPORT INFORMATION
  Report Type: 
  Country: None (occurrence: None)
  Receive Date: 20110121
  Receipt Date: 20110119
  Transmission Date: 20110831
  Serious: Yes (Other)
  Sender: FDA-Public Use
  Company Number: US-PFIZER INC-2010170228

PATIENT
  Sex: Female
  Weight: 68.027 kg

DRUGS (4)
  1. MECLIZINE HYDROCHLORIDE [Interacting]
     Indication: VERTIGO
     Dosage: UNK
     Route: 048
     Dates: start: 20100901, end: 20101001
  2. TOPROL-XL [Interacting]
     Indication: HYPERTENSION
     Dosage: 50 MG, 1X/DAY
     Route: 048
     Dates: end: 20100101
  3. NORVASC [Suspect]
     Indication: HYPERTENSION
     Dosage: 5 MG, 1X/DAY
     Route: 048
  4. ZOCOR [Concomitant]
     Indication: BLOOD CHOLESTEROL ABNORMAL
     Dosage: 20 MG, 1X/DAY
     Route: 048

REACTIONS (3)
  - ASTHENIA [None]
  - LOSS OF CONSCIOUSNESS [None]
  - DRUG INTERACTION [None]
